FAERS Safety Report 26139879 (Version 1)
Quarter: 2025Q4

REPORT INFORMATION
  Report Type: Spontaneous
  Country: US (occurrence: None)
  Receive Date: 20251209
  Receipt Date: 20251209
  Transmission Date: 20260117
  Serious: Yes (Other)
  Sender: FDA-CTU
  Company Number: None

PATIENT
  Age: 71 Year
  Sex: Female
  Weight: 54.43 kg

DRUGS (11)
  1. EMGALITY [Suspect]
     Active Substance: GALCANEZUMAB-GNLM
     Indication: Migraine
     Dosage: FREQUENCY : MONTHLY;?OTHER ROUTE : INJECTION;
     Route: 050
     Dates: start: 20250722, end: 20251022
  2. VITAMINS [Concomitant]
     Active Substance: VITAMINS
  3. VIT SUPER K [Concomitant]
  4. STRONTIUM 750MG [Concomitant]
  5. VITAMIN C [Concomitant]
     Active Substance: ASCORBIC ACID
  6. D3 2000 IU [Concomitant]
  7. MAGNESIUM 120MG [Concomitant]
  8. LOMOTIL 2.5 [Concomitant]
  9. ONDANSETRON [Concomitant]
     Active Substance: ONDANSETRON
  10. SUMATRIP 6MG 0.5 [Concomitant]
  11. BUTALB (FIORISET) [Concomitant]

REACTIONS (1)
  - Cognitive disorder [None]

NARRATIVE: CASE EVENT DATE: 20250805
